FAERS Safety Report 12180673 (Version 1)
Quarter: 2016Q1

REPORT INFORMATION
  Report Type: Spontaneous
  Country: US (occurrence: US)
  Receive Date: 20160315
  Receipt Date: 20160315
  Transmission Date: 20160526
  Serious: Yes (Hospitalization)
  Sender: FDA-Public Use
  Company Number: US-BEH-2016059836

PATIENT
  Sex: Female
  Weight: 78 kg

DRUGS (24)
  1. URSODIOL. [Concomitant]
     Active Substance: URSODIOL
  2. DEMADEX [Concomitant]
     Active Substance: TORSEMIDE
  3. ALLEGRA-D [Concomitant]
     Active Substance: FEXOFENADINE\PSEUDOEPHEDRINE
  4. SYNTHROID [Concomitant]
     Active Substance: LEVOTHYROXINE SODIUM
  5. NOVOLOG [Concomitant]
     Active Substance: INSULIN ASPART
  6. CRESTOR [Concomitant]
     Active Substance: ROSUVASTATIN CALCIUM
  7. DIPHENHYDRAMINE. [Concomitant]
     Active Substance: DIPHENHYDRAMINE
  8. TRAZODONE [Concomitant]
     Active Substance: TRAZODONE HYDROCHLORIDE
  9. ADVAIR HFA [Concomitant]
     Active Substance: FLUTICASONE PROPIONATE\SALMETEROL XINAFOATE
  10. MULTIVITAMINS [Concomitant]
     Active Substance: VITAMINS
  11. SPIRIVA [Concomitant]
     Active Substance: TIOTROPIUM BROMIDE MONOHYDRATE
  12. HIZENTRA [Suspect]
     Active Substance: HUMAN IMMUNOGLOBULIN G
     Indication: IMMUNODEFICIENCY COMMON VARIABLE
     Route: 058
  13. ACETAMINOPHEN. [Concomitant]
     Active Substance: ACETAMINOPHEN
  14. NITROSTAT [Concomitant]
     Active Substance: NITROGLYCERIN
  15. VITAMIN D2 [Concomitant]
     Active Substance: ERGOCALCIFEROL
  16. LEXAPRO [Concomitant]
     Active Substance: ESCITALOPRAM OXALATE
  17. FOLBIC [Concomitant]
     Active Substance: CYANOCOBALAMIN\FOLIC ACID\PYRIDOXINE
  18. PLAVIX [Concomitant]
     Active Substance: CLOPIDOGREL BISULFATE
  19. SINGULAIR [Concomitant]
     Active Substance: MONTELUKAST SODIUM
  20. EPIPEN [Concomitant]
     Active Substance: EPINEPHRINE
  21. LIDOCAINE. [Concomitant]
     Active Substance: LIDOCAINE
  22. BUSPIRONE [Concomitant]
     Active Substance: BUSPIRONE HYDROCHLORIDE
  23. CALCIUM [Concomitant]
     Active Substance: CALCIUM
  24. PROTONIX [Concomitant]
     Active Substance: PANTOPRAZOLE SODIUM

REACTIONS (3)
  - Device failure [Unknown]
  - Chest pain [Unknown]
  - Diabetes mellitus [Unknown]
